FAERS Safety Report 13770468 (Version 1)
Quarter: 2017Q3

REPORT INFORMATION
  Report Type: Spontaneous
  Country: ES (occurrence: ES)
  Receive Date: 20170719
  Receipt Date: 20170719
  Transmission Date: 20171127
  Serious: Yes (Hospitalization)
  Sender: FDA-Public Use
  Company Number: ES-BEH-2017082075

PATIENT
  Age: 39 Year
  Sex: Female

DRUGS (12)
  1. TRANXILIUM [Concomitant]
     Active Substance: CLORAZEPATE DIPOTASSIUM
     Dosage: 20 MG, QD (10 MG, 1-1-0-0-0 CAPSULES)
     Route: 048
  2. FOSTER                             /00500401/ [Concomitant]
     Active Substance: PIROXICAM
     Dosage: 2 DF, TID (2 INHALATIONS, 8 HOURS)
     Route: 055
  3. COMBIPRASAL [Concomitant]
     Active Substance: ALBUTEROL SULFATE\IPRATROPIUM BROMIDE
     Dosage: 5 MG, QID (1 BLISTER, 6 HOURS)
     Route: 065
  4. CALCIFEDIOL [Concomitant]
     Active Substance: CALCIFEDIOL
     Dosage: 266 MCG 10 AMP DRINKABLE, 1 AMPOULE WEEKLY
     Route: 048
  5. PANTOPRAZOLE [Concomitant]
     Active Substance: PANTOPRAZOLE
     Dosage: 40 MG, QD (1 TABLET 24 HOURS)
     Route: 065
  6. SEEBRI [Concomitant]
     Active Substance: GLYCOPYRRONIUM
     Dosage: 44 ?G, QD (1 CAPSULE, 24 HOURS)
     Route: 065
  7. VENTOLIN [Concomitant]
     Active Substance: ALBUTEROL SULFATE
     Dosage: 100 ?G/DOSE, 2 INHALATIONS, 4 HOURS
     Route: 055
  8. PREDNISONE. [Concomitant]
     Active Substance: PREDNISONE
     Dosage: 5 MG, QD
     Route: 065
  9. PARACETAMOL [Concomitant]
     Active Substance: ACETAMINOPHEN
     Dosage: 1 G, BID (1 TABLET 12 HOURS)
     Route: 065
  10. RESPREEZA [Suspect]
     Active Substance: .ALPHA.1-PROTEINASE INHIBITOR HUMAN
     Indication: ALPHA-1 ANTI-TRYPSIN DEFICIENCY
     Dosage: 8.46 G, Q3W
     Route: 042
     Dates: start: 20170614, end: 20170614
  11. REXER [Concomitant]
     Active Substance: MIRTAZAPINE
     Dosage: 15 MG, QD (1 TABLET AT BEDTIME)
     Route: 048
  12. NEOBRUFEN [Concomitant]
     Dosage: 600 MG, TID (1 ENVELOPE 8 HOURS)
     Route: 065

REACTIONS (1)
  - Bronchospasm [Recovered/Resolved]

NARRATIVE: CASE EVENT DATE: 20170614
